FAERS Safety Report 7898802-2 (Version None)
Quarter: 2011Q4

REPORT INFORMATION
  Report Type: 
  Country: None (occurrence: None)
  Receive Date: 20111107
  Receipt Date: 20111101
  Transmission Date: 20120403
  Serious: Yes (Hospitalization, Other)
  Sender: FDA-Public Use
  Company Number: US-BRISTOL-MYERS SQUIBB COMPANY-16124794

PATIENT
  Age: 26 Year
  Sex: Male
  Weight: 103 kg

DRUGS (6)
  1. SINEMET [Concomitant]
  2. AMANTADINE HCL [Concomitant]
  3. RESTORIL [Concomitant]
  4. ATENOLOL [Suspect]
  5. AZILECT [Concomitant]
  6. IPILIMUMAB [Suspect]
     Indication: MALIGNANT MELANOMA
     Dosage: CYCLE:21 DAYS NO OF COURSES:4 LAST DOSE:29JUL11 HELD FOR 10 DAYS
     Dates: start: 20110527

REACTIONS (5)
  - HYPOALBUMINAEMIA [None]
  - ASPARTATE AMINOTRANSFERASE INCREASED [None]
  - BLOOD BILIRUBIN INCREASED [None]
  - BILE DUCT OBSTRUCTION [None]
  - BLOOD ALKALINE PHOSPHATASE INCREASED [None]
